FAERS Safety Report 11650220 (Version 1)
Quarter: 2015Q4

REPORT INFORMATION
  Report Type: Spontaneous
  Country: US (occurrence: US)
  Receive Date: 20151021
  Receipt Date: 20151021
  Transmission Date: 20160304
  Serious: No
  Sender: FDA-Public Use
  Company Number: US-PFIZER INC-2015335933

PATIENT
  Age: 62 Year
  Sex: Female
  Weight: 73 kg

DRUGS (1)
  1. ADVIL [Suspect]
     Active Substance: IBUPROFEN
     Indication: ARTHRALGIA
     Dosage: 2 TABLETS WHEN NEEDED
     Dates: start: 20151006

REACTIONS (6)
  - Dysphagia [Recovered/Resolved]
  - Product difficult to swallow [Recovered/Resolved]
  - Poor quality drug administered [Not Recovered/Not Resolved]
  - Product colour issue [Not Recovered/Not Resolved]
  - Blood pressure increased [Unknown]
  - Product physical issue [Unknown]

NARRATIVE: CASE EVENT DATE: 20151006
